FAERS Safety Report 23381699 (Version 2)
Quarter: 2024Q1

REPORT INFORMATION
  Report Type: Other
  Country: MX (occurrence: None)
  Receive Date: 20240109
  Receipt Date: 20240110
  Transmission Date: 20240410
  Serious: No
  Sender: FDA-Public Use
  Company Number: MX-ROCHE-3487749

PATIENT
  Age: 58 Year
  Sex: Female

DRUGS (3)
  1. KADCYLA [Suspect]
     Active Substance: ADO-TRASTUZUMAB EMTANSINE
     Indication: Breast cancer metastatic
     Route: 042
     Dates: start: 20230307
  2. KEPPRA [Concomitant]
     Active Substance: LEVETIRACETAM
     Indication: Metastases to central nervous system
     Route: 048
     Dates: start: 202312
  3. PREGABALIN [Concomitant]
     Active Substance: PREGABALIN
     Indication: Metastases to central nervous system
     Route: 048

REACTIONS (1)
  - Arthropod bite [Recovering/Resolving]

NARRATIVE: CASE EVENT DATE: 20231223
